FAERS Safety Report 5153951-7 (Version None)
Quarter: 2006Q4

REPORT INFORMATION
  Report Type: 
  Country: None (occurrence: None)
  Receive Date: 20061120
  Receipt Date: 20061009
  Transmission Date: 20070319
  Serious: Yes (Hospitalization)
  Sender: FDA-Public Use
  Company Number: NZ-ROCHE-466397

PATIENT
  Age: 71 Year
  Sex: Female
  Weight: 60 kg

DRUGS (5)
  1. CAPECITABINE [Suspect]
     Indication: COLORECTAL CANCER
     Dosage: FROM DAYS ONE TO SEVEN EVERY TWO WEEKS. A REDUCED DOSE OF 2000 MG TWICE DAILY IS TO START ON 24 OCT+
     Route: 048
     Dates: start: 20060912, end: 20060930
  2. CAPECITABINE [Suspect]
     Route: 048
     Dates: start: 20061024
  3. BEVACIZUMAB [Suspect]
     Indication: COLORECTAL CANCER
     Dosage: DATE OF LAST DOSE PRIOR TO SAE: 26 SEP 2006
     Route: 042
     Dates: start: 20060912
  4. OXALIPLATIN [Suspect]
     Indication: COLORECTAL CANCER
     Dosage: DATE OF LAST DOSE PRIOR TO SAE: 26 SEP 2006
     Route: 042
     Dates: start: 20060912
  5. ONDANSETRON [Concomitant]
     Route: 042
     Dates: start: 20060926, end: 20061011

REACTIONS (7)
  - COLITIS [None]
  - DEHYDRATION [None]
  - DIZZINESS [None]
  - GASTRITIS [None]
  - NAUSEA [None]
  - TONGUE COATED [None]
  - VOMITING [None]
